FAERS Safety Report 17681828 (Version 1)
Quarter: 2020Q2

REPORT INFORMATION
  Report Type: Spontaneous
  Country: US (occurrence: US)
  Receive Date: 20200417
  Receipt Date: 20200417
  Transmission Date: 20200714
  Serious: No
  Sender: FDA-Public Use
  Company Number: US-GLAXOSMITHKLINE-US2020065385

PATIENT
  Age: 67 Year
  Sex: Female

DRUGS (1)
  1. FLONASE ALLERGY RELIEF [Suspect]
     Active Substance: FLUTICASONE PROPIONATE
     Indication: HYPERSENSITIVITY
     Dosage: UNK
     Dates: start: 20200412

REACTIONS (5)
  - Product use issue [Unknown]
  - Adverse reaction [Recovered/Resolved]
  - Paraesthesia [Unknown]
  - Feeling hot [Unknown]
  - Palpitations [Unknown]

NARRATIVE: CASE EVENT DATE: 20200413
